FAERS Safety Report 5370949-4 (Version None)
Quarter: 2007Q2

REPORT INFORMATION
  Report Type: 
  Country: None (occurrence: None)
  Receive Date: 20070626
  Receipt Date: 20070615
  Transmission Date: 20071010
  Serious: Yes (Hospitalization)
  Sender: FDA-Public Use
  Company Number: CA-PFIZER INC-2007004644

PATIENT
  Sex: Male
  Weight: 103.5 kg

DRUGS (8)
  1. SU-011,248 [Suspect]
     Indication: METASTATIC RENAL CELL CARCINOMA
     Route: 048
     Dates: start: 20060620, end: 20070102
  2. CILAZAPRIL [Concomitant]
     Route: 048
  3. LASIX [Concomitant]
     Route: 048
  4. ATENOLOL [Concomitant]
     Route: 048
  5. TYLENOL [Concomitant]
     Route: 048
  6. LOPERAMIDE HYDROCHLORIDE [Concomitant]
     Route: 048
  7. BAKING SODA [Concomitant]
     Route: 048
  8. HYDROCHLOROTHIAZIDE [Concomitant]
     Route: 048

REACTIONS (2)
  - PNEUMONIA [None]
  - SEPSIS [None]
